FAERS Safety Report 21540670 (Version 2)
Quarter: 2022Q4

REPORT INFORMATION
  Report Type: Spontaneous
  Country: BR (occurrence: BR)
  Receive Date: 20221102
  Receipt Date: 20221117
  Transmission Date: 20230112
  Serious: Yes (Other)
  Sender: FDA-Public Use
  Company Number: BR-002147023-NVSC2022BR243919

PATIENT
  Age: 46 Year
  Sex: Female
  Weight: 55 kg

DRUGS (10)
  1. VOTRIENT [Suspect]
     Active Substance: PAZOPANIB HYDROCHLORIDE
     Indication: Gastric cancer
     Dosage: 2 DOSAGE FORM, QD, (60 COATED TABLETS)
     Route: 065
     Dates: start: 20160509
  2. VOTRIENT [Suspect]
     Active Substance: PAZOPANIB HYDROCHLORIDE
     Indication: Metastases to liver
     Dosage: 1 DOSAGE FORM, QD (6 YEARS AGO)
     Route: 065
  3. VOTRIENT [Suspect]
     Active Substance: PAZOPANIB HYDROCHLORIDE
     Indication: Metastases to lung
     Dosage: 2 DOSAGE FORM, BID
     Route: 065
     Dates: start: 202210
  4. VOTRIENT [Suspect]
     Active Substance: PAZOPANIB HYDROCHLORIDE
     Indication: Sarcoma
  5. ZOLPIDEM [Concomitant]
     Active Substance: ZOLPIDEM TARTRATE
     Indication: Sleep disorder
     Dosage: 1 DOSAGE FORM, QD
     Route: 065
  6. ZOLPIDEM [Concomitant]
     Active Substance: ZOLPIDEM TARTRATE
     Dosage: UNK, 1/2 QD, (EMS) (1 YEAR AGO)
     Route: 065
  7. CARVEDILOL [Concomitant]
     Active Substance: CARVEDILOL
     Indication: Cardiac failure
     Dosage: 2 DOSAGE FORM, QD
     Route: 065
  8. CARVEDILOL [Concomitant]
     Active Substance: CARVEDILOL
     Dosage: 1 DOSAGE FORM, BID (EMS) (9 YEARS AGO)
     Route: 048
  9. LOPERAMIDE [Concomitant]
     Active Substance: LOPERAMIDE
     Indication: Diarrhoea
     Dosage: 10 DOSAGE FORM, QD
     Route: 065
  10. LOPERAMIDE [Concomitant]
     Active Substance: LOPERAMIDE
     Dosage: 2 DOSAGE FORM, Q4H (7 YEARS AGO)
     Route: 048

REACTIONS (10)
  - Gastric cancer [Not Recovered/Not Resolved]
  - Metastases to liver [Not Recovered/Not Resolved]
  - Condition aggravated [Not Recovered/Not Resolved]
  - Metastases to lung [Not Recovered/Not Resolved]
  - Asthenia [Recovering/Resolving]
  - Urinary tract infection [Recovering/Resolving]
  - Pain [Not Recovered/Not Resolved]
  - Diarrhoea [Not Recovered/Not Resolved]
  - Product use in unapproved indication [Unknown]
  - Incorrect dose administered [Recovered/Resolved]

NARRATIVE: CASE EVENT DATE: 20221001
